FAERS Safety Report 5596390-7 (Version None)
Quarter: 2007Q4

REPORT INFORMATION
  Report Type: 
  Country: None (occurrence: None)
  Receive Date: 20071218
  Receipt Date: 20070515
  Transmission Date: 20080405
  Serious: Yes (Hospitalization, Other)
  Sender: FDA-Public Use
  Company Number: 2006008442

PATIENT
  Age: 47 Year
  Sex: Male
  Weight: 94.8 kg

DRUGS (10)
  1. BEXTRA [Suspect]
     Indication: ARTHRITIS
     Dosage: (1 IN 1 D),ORAL
     Route: 048
     Dates: start: 20030901, end: 20040929
  2. BEXTRA [Suspect]
     Indication: BACK PAIN
     Dosage: (1 IN 1 D),ORAL
     Route: 048
     Dates: start: 20030901, end: 20040929
  3. BEXTRA [Suspect]
     Indication: MUSCULOSKELETAL PAIN
     Dosage: (1 IN 1 D),ORAL
     Route: 048
     Dates: start: 20030901, end: 20040929
  4. PROZAC [Concomitant]
  5. TRAZODONE HCL [Concomitant]
  6. VIAGRA [Concomitant]
  7. HYDROCHLOROTHIAZIDE [Concomitant]
  8. EFFEXOR [Concomitant]
  9. METHADONE HCL [Concomitant]
  10. SKELAXIN [Concomitant]

REACTIONS (1)
  - MYOCARDIAL INFARCTION [None]
